FAERS Safety Report 6364389-9 (Version None)
Quarter: 2009Q3

REPORT INFORMATION
  Report Type: 
  Country: None (occurrence: None)
  Receive Date: 20090919
  Receipt Date: 20090716
  Transmission Date: 20100115
  Serious: No
  Sender: FDA-Public Use
  Company Number: US-ABBOTT-09P-163-0586309-00

PATIENT
  Age: 68 Year
  Sex: Female
  Weight: 49.94 kg

DRUGS (5)
  1. HUMIRA [Suspect]
     Indication: CROHN'S DISEASE
     Route: 058
     Dates: start: 20080301
  2. HUMIRA [Suspect]
     Route: 058
     Dates: start: 20080101, end: 20090501
  3. HUMIRA [Suspect]
     Dates: start: 20090604
  4. HUMIRA [Suspect]
     Dates: start: 20090716
  5. UNKNOWN MED [Concomitant]
     Indication: SLEEP DISORDER

REACTIONS (3)
  - COUGH [None]
  - INFLUENZA [None]
  - PNEUMONIA [None]
